FAERS Safety Report 14269123 (Version 1)
Quarter: 2017Q4

REPORT INFORMATION
  Report Type: Spontaneous
  Country: GB (occurrence: GB)
  Receive Date: 20171211
  Receipt Date: 20171211
  Transmission Date: 20180321
  Serious: Yes (Hospitalization)
  Sender: FDA-Public Use
  Company Number: GB-OTSUKA-2017_009600

PATIENT
  Age: 20 Year
  Sex: Female
  Weight: 60 kg

DRUGS (4)
  1. ABILIFY [Suspect]
     Active Substance: ARIPIPRAZOLE
     Indication: BIPOLAR DISORDER
     Dosage: 5 MG, UNK
     Route: 048
     Dates: start: 20161214, end: 20161228
  2. ABILIFY [Suspect]
     Active Substance: ARIPIPRAZOLE
     Indication: PRODUCT USED FOR UNKNOWN INDICATION
     Dosage: 10 MG, UNK
     Route: 048
     Dates: start: 20161229, end: 20170113
  3. CERAZETTE [Concomitant]
     Active Substance: DESOGESTREL
     Indication: PRODUCT USED FOR UNKNOWN INDICATION
     Dosage: UNK
     Route: 065
  4. ABILIFY [Suspect]
     Active Substance: ARIPIPRAZOLE
     Dosage: 5 MG, UNK
     Route: 048
     Dates: start: 20170114, end: 20170116

REACTIONS (2)
  - Akathisia [Recovered/Resolved]
  - Loss of libido [Recovered/Resolved]

NARRATIVE: CASE EVENT DATE: 20161215
